FAERS Safety Report 8537248 (Version 3)
Quarter: 2013Q3

REPORT INFORMATION
  Report Type: Spontaneous
  Country: US (occurrence: US)
  Receive Date: 20120430
  Receipt Date: 20130731
  Transmission Date: 20140515
  Serious: Yes (Hospitalization, Other)
  Sender: FDA-Public Use
  Company Number: US-ASTRAZENECA-2012SE25971

PATIENT
  Age: 49 Year
  Sex: Male
  Weight: 142.9 kg

DRUGS (25)
  1. NEXIUM [Suspect]
     Indication: GASTROOESOPHAGEAL REFLUX DISEASE
     Route: 048
     Dates: end: 2007
  2. NEXIUM [Suspect]
     Indication: GASTROOESOPHAGEAL REFLUX DISEASE
     Route: 048
     Dates: start: 2010
  3. NEXIUM [Suspect]
     Indication: GASTROOESOPHAGEAL REFLUX DISEASE
     Dosage: UNKNOWN DOSE AS REQUIRED
     Route: 048
     Dates: start: 201209
  4. PAIN MEDICATION [Concomitant]
  5. PREDNISONE [Concomitant]
     Dates: start: 1998
  6. ZANTAC [Concomitant]
     Indication: GASTROOESOPHAGEAL REFLUX DISEASE
     Route: 048
     Dates: start: 201210
  7. LORTAB [Concomitant]
     Indication: PAIN
     Route: 048
     Dates: start: 2009
  8. MORPHINE [Concomitant]
     Indication: PAIN
     Dates: start: 2010
  9. VALIUM [Concomitant]
     Indication: DEPRESSION
     Route: 048
     Dates: start: 2005, end: 2009
  10. VALIUM [Concomitant]
     Indication: NERVOUS SYSTEM DISORDER
     Route: 048
     Dates: start: 2005, end: 2009
  11. VALIUM [Concomitant]
     Indication: DEPRESSION
     Route: 048
     Dates: start: 2009, end: 2011
  12. VALIUM [Concomitant]
     Indication: NERVOUS SYSTEM DISORDER
     Route: 048
     Dates: start: 2009, end: 2011
  13. VALIUM [Concomitant]
     Indication: DEPRESSION
     Route: 048
     Dates: start: 2011
  14. VALIUM [Concomitant]
     Indication: NERVOUS SYSTEM DISORDER
     Route: 048
     Dates: start: 2011
  15. DARVOCET [Concomitant]
     Indication: PAIN
     Dates: start: 2003, end: 2009
  16. AMBIEN [Concomitant]
     Indication: INSOMNIA
     Route: 048
  17. TRAZADONE [Concomitant]
     Indication: INSOMNIA
     Route: 048
  18. PRO-AIR INHALER [Concomitant]
     Indication: CHRONIC OBSTRUCTIVE PULMONARY DISEASE
     Dosage: 10-12 PUFFS DAILY
     Route: 055
     Dates: start: 201301
  19. INHALER CORTICOSTEROID STUDY [Concomitant]
     Indication: CHRONIC OBSTRUCTIVE PULMONARY DISEASE
     Route: 055
  20. SPIRIVA [Concomitant]
     Indication: CHRONIC OBSTRUCTIVE PULMONARY DISEASE
     Route: 055
  21. ADVAIR [Concomitant]
     Indication: CHRONIC OBSTRUCTIVE PULMONARY DISEASE
     Route: 055
  22. NEBULIZER [Concomitant]
     Indication: CHRONIC OBSTRUCTIVE PULMONARY DISEASE
     Dosage: UNKNOWN DOSE AS REQUIRED
  23. BI-PAP [Concomitant]
     Indication: CHRONIC OBSTRUCTIVE PULMONARY DISEASE
     Dosage: AT NIGHT
     Route: 055
  24. ATENOLOL [Concomitant]
  25. LISINOPRIL HCT [Concomitant]

REACTIONS (15)
  - Myocardial infarction [Unknown]
  - Back injury [Unknown]
  - Renal failure [Unknown]
  - Heat stroke [Recovered/Resolved with Sequelae]
  - Hypotension [Not Recovered/Not Resolved]
  - Loss of consciousness [Unknown]
  - Gastrooesophageal reflux disease [Unknown]
  - Spinal disorder [Unknown]
  - Body height decreased [Unknown]
  - Hypertension [Unknown]
  - Arthritis [Unknown]
  - Dehydration [Unknown]
  - Eructation [Unknown]
  - Arthralgia [Unknown]
  - Intentional drug misuse [Unknown]
